FAERS Safety Report 26039917 (Version 1)
Quarter: 2025Q4

REPORT INFORMATION
  Report Type: Spontaneous
  Country: CN (occurrence: CN)
  Receive Date: 20251113
  Receipt Date: 20251113
  Transmission Date: 20260117
  Serious: Yes (Life-Threatening, Other)
  Sender: TAKEDA
  Company Number: CN-TAKEDA-2025TUS101133

PATIENT
  Age: 17 Year
  Sex: Male
  Weight: 67 kg

DRUGS (1)
  1. ALBUMIN HUMAN [Suspect]
     Active Substance: ALBUMIN HUMAN
     Indication: Hypoproteinaemia
     Dosage: 10 GRAM
     Dates: start: 20251029, end: 20251031

REACTIONS (1)
  - Shock symptom [Recovered/Resolved]

NARRATIVE: CASE EVENT DATE: 20251031
